FAERS Safety Report 21753556 (Version 3)
Quarter: 2023Q1

REPORT INFORMATION
  Report Type: Report from Study
  Country: HU (occurrence: HU)
  Receive Date: 20221220
  Receipt Date: 20230212
  Transmission Date: 20230418
  Serious: Yes (Hospitalization, Disabling, Other)
  Sender: FDA-Public Use
  Company Number: HU-002147023-NVSC2022HU292219

PATIENT
  Sex: Female

DRUGS (2)
  1. KISQALI [Suspect]
     Active Substance: RIBOCICLIB
     Indication: Product used for unknown indication
     Dosage: 3 DOSAGE FORM, QD (3X200 MG, 1X DAILY FOR 21 DAYS)
     Route: 048
     Dates: start: 20220316, end: 20221103
  2. KISQALI [Suspect]
     Active Substance: RIBOCICLIB
     Dosage: 3 DOSAGE FORM, QD (3X200 MG, 1X DAILY FOR 21 DAYS)
     Route: 048
     Dates: start: 20230112

REACTIONS (4)
  - Gangrene [Unknown]
  - Pain [Recovered/Resolved]
  - Obstruction [Unknown]
  - Extremity necrosis [Unknown]

NARRATIVE: CASE EVENT DATE: 20220101
